FAERS Safety Report 21781648 (Version 1)
Quarter: 2022Q4

REPORT INFORMATION
  Report Type: Spontaneous
  Country: US (occurrence: None)
  Receive Date: 20221223
  Receipt Date: 20221223
  Transmission Date: 20230113
  Serious: Yes (Death)
  Sender: FDA-Public Use
  Company Number: None

PATIENT
  Age: 89 Year
  Sex: Female
  Weight: 55.3 kg

DRUGS (2)
  1. GEMCITABINE HYDROCHLORIDE [Suspect]
     Active Substance: GEMCITABINE HYDROCHLORIDE
     Dates: end: 20221206
  2. PACLITAXEL [Suspect]
     Active Substance: PACLITAXEL
     Dates: end: 20221206

REACTIONS (2)
  - Cardiac failure [None]
  - Diarrhoea [None]

NARRATIVE: CASE EVENT DATE: 20221216
